FAERS Safety Report 17258178 (Version 1)
Quarter: 2020Q1

REPORT INFORMATION
  Report Type: Spontaneous
  Country: CH (occurrence: CH)
  Receive Date: 20200110
  Receipt Date: 20200110
  Transmission Date: 20200409
  Serious: Yes (Other)
  Sender: FDA-Public Use
  Company Number: CH-JNJFOC-20200106908

PATIENT
  Age: 79 Year
  Sex: Female

DRUGS (24)
  1. AZACTAM [Suspect]
     Active Substance: AZTREONAM
     Indication: PRODUCT USED FOR UNKNOWN INDICATION
     Dosage: 2 G, UNK
     Route: 065
     Dates: start: 20191208, end: 20191213
  2. QUETIAPINE. [Concomitant]
     Active Substance: QUETIAPINE
  3. SERTRALINE [Concomitant]
     Active Substance: SERTRALINE HYDROCHLORIDE
  4. SODIUM CHLORIDE. [Concomitant]
     Active Substance: SODIUM CHLORIDE
     Dates: start: 20191209
  5. ESOMEPRAZOLE. [Concomitant]
     Active Substance: ESOMEPRAZOLE MAGNESIUM
     Dates: start: 20191129
  6. TRANSTEC [Concomitant]
     Active Substance: BUPRENORPHINE
     Dates: end: 20191129
  7. TAVANIC [Concomitant]
     Active Substance: LEVOFLOXACIN
     Dates: end: 20191129
  8. CLYSSIE [Concomitant]
     Dosage: AS NECESSARY
     Dates: start: 20191204
  9. CETALLERG [Concomitant]
     Active Substance: CETIRIZINE HYDROCHLORIDE
     Dates: end: 20191129
  10. PHYSIOTENS [Suspect]
     Active Substance: MOXONIDINE
     Indication: PRODUCT USED FOR UNKNOWN INDICATION
     Dosage: .4 MG, UNK
     Route: 065
  11. TORASEMIDE [Concomitant]
     Active Substance: TORSEMIDE
  12. RISPERDAL [Concomitant]
     Active Substance: RISPERIDONE
     Route: 048
  13. IPRAMOL [Concomitant]
     Active Substance: ALBUTEROL SULFATE\IPRATROPIUM BROMIDE
  14. MORPHINE [Concomitant]
     Active Substance: MORPHINE
     Dates: start: 20191209
  15. LAXOBERON [Concomitant]
     Active Substance: SODIUM PICOSULFATE
  16. RIVAROXABAN [Suspect]
     Active Substance: RIVAROXABAN
     Indication: PRODUCT USED FOR UNKNOWN INDICATION
     Dosage: 15 MG, BID
     Route: 048
     Dates: start: 20191202
  17. ROBINUL [Suspect]
     Active Substance: GLYCOPYRROLATE
     Indication: PRODUCT USED FOR UNKNOWN INDICATION
     Dosage: .2 MG, UNK
     Route: 065
     Dates: start: 20191205, end: 20191210
  18. POTASSIUM [Concomitant]
     Active Substance: POTASSIUM
     Dates: start: 20191210
  19. HYOSCINE [Concomitant]
     Active Substance: SCOPOLAMINE
     Dates: start: 20191210
  20. PODOMEXEF [Concomitant]
     Active Substance: CEFPODOXIME PROXETIL
     Dates: end: 20191129
  21. ALDACTONE [Suspect]
     Active Substance: SPIRONOLACTONE
     Indication: PRODUCT USED FOR UNKNOWN INDICATION
     Dosage: 12.5 MG, QD
     Route: 065
     Dates: start: 20191209
  22. OMEPRAZOLE. [Concomitant]
     Active Substance: OMEPRAZOLE
     Dates: end: 20191129
  23. RIVOTRIL [Concomitant]
     Active Substance: CLONAZEPAM
     Dosage: AS NECESSARY
     Dates: start: 20191209
  24. ISOKET [Concomitant]
     Active Substance: ISOSORBIDE DINITRATE
     Dates: start: 20191210, end: 20191210

REACTIONS (1)
  - Atrioventricular block complete [Recovered/Resolved]

NARRATIVE: CASE EVENT DATE: 20191210
